FAERS Safety Report 6361428-6 (Version None)
Quarter: 2009Q3

REPORT INFORMATION
  Report Type: 
  Country: None (occurrence: None)
  Receive Date: 20090918
  Receipt Date: 20090907
  Transmission Date: 20100115
  Serious: Yes (Other)
  Sender: FDA-Public Use
  Company Number: GB-PFIZER INC-2009244841

PATIENT
  Age: 28 Year

DRUGS (7)
  1. SUTENT [Suspect]
     Indication: RENAL CELL CARCINOMA
     Dosage: 50 MG, 1X/DAY
     Route: 048
     Dates: start: 20060628
  2. SUTENT [Suspect]
     Dosage: 37.5 MG, UNK
     Route: 048
  3. FENTANYL [Concomitant]
     Indication: BACK PAIN
     Dosage: 150 MG, UNK
     Route: 062
     Dates: start: 20060401, end: 20070501
  4. OXYNORM [Concomitant]
     Indication: BACK PAIN
     Dosage: 60 MG, 4X/DAY
     Dates: start: 20070501
  5. OXYCONTIN [Concomitant]
     Indication: BACK PAIN
     Dosage: 160 MG, 2X/DAY
     Dates: start: 20070501
  6. ZOMETA [Concomitant]
     Indication: METASTASES TO BONE
     Dosage: 4 MG, UNK
     Dates: start: 20060401, end: 20070201
  7. PAMIDRONATE DISODIUM [Concomitant]
     Indication: METASTASES TO BONE
     Dosage: 60 MG, UNK
     Dates: start: 20070301

REACTIONS (1)
  - LUNG INFILTRATION [None]
